FAERS Safety Report 5286195-9 (Version None)
Quarter: 2007Q2

REPORT INFORMATION
  Report Type: 
  Country: None (occurrence: None)
  Receive Date: 20070403
  Receipt Date: 20070403
  Transmission Date: 20071010
  Serious: Yes (Hospitalization)
  Sender: FDA-Public Use
  Company Number: None

PATIENT
  Sex: Male
  Weight: 80 kg

DRUGS (9)
  1. RITUXIMAB (MOAB C2B8 ANTI CD20, CHIMERIC) [Suspect]
  2. VINCRISTINE SULFATE [Suspect]
     Dosage: 2 MG
  3. CYCLOPHOSPHAMIDE [Suspect]
     Dosage: 1440 MG
  4. DOXIL [Suspect]
     Dosage: 77 MG
  5. NEULASTA [Suspect]
     Dosage: 6 MG
  6. PREDNISONE TAB [Suspect]
     Dosage: 80  MG
  7. CEFACLOR [Concomitant]
  8. DYNACIRC [Concomitant]
  9. PROPRANOLOL [Concomitant]

REACTIONS (3)
  - BLOOD PRESSURE SYSTOLIC INCREASED [None]
  - HEART RATE INCREASED [None]
  - RESPIRATORY RATE INCREASED [None]
